FAERS Safety Report 9190549 (Version 4)
Quarter: 2018Q1

REPORT INFORMATION
  Report Type: Report from Study
  Country: US (occurrence: US)
  Receive Date: 20130326
  Receipt Date: 20180217
  Transmission Date: 20180509
  Serious: Yes (Other)
  Sender: FDA-Public Use
  Company Number: US-ROCHE-1206660

PATIENT
  Age: 58 Year
  Sex: Female
  Weight: 87.27 kg

DRUGS (17)
  1. TRAZODONE HYDROCHLORIDE. [Concomitant]
     Active Substance: TRAZODONE HYDROCHLORIDE
  2. NUTROPIN AQ [Suspect]
     Active Substance: SOMATROPIN
     Indication: GROWTH HORMONE DEFICIENCY
     Route: 058
  3. NUTROPIN AQ [Suspect]
     Active Substance: SOMATROPIN
     Route: 058
  4. PROCHLORPERAZINE MALEATE. [Concomitant]
     Active Substance: PROCHLORPERAZINE MALEATE
     Indication: MIGRAINE
  5. FIORICET [Concomitant]
     Active Substance: ACETAMINOPHEN\BUTALBITAL\CAFFEINE
     Route: 065
  6. TOPIRAMATE. [Concomitant]
     Active Substance: TOPIRAMATE
     Route: 065
  7. FLEXERIL [Concomitant]
     Active Substance: CYCLOBENZAPRINE HYDROCHLORIDE
     Indication: MUSCLE SPASMS
     Route: 065
  8. PERCOCET [Concomitant]
     Active Substance: ACETAMINOPHEN\OXYCODONE HYDROCHLORIDE
     Route: 065
  9. CODEINE [Concomitant]
     Active Substance: CODEINE
     Route: 048
  10. VITAMIN B COMPLEX [Concomitant]
     Active Substance: CYANOCOBALAMIN\DEXPANTHENOL\NIACINAMIDE\PYRIDOXINE HYDROCHLORIDE\RIBOFLAVIN 5^-PHOSPHATE SODIUM\THIAMINE HYDROCHLORIDE\VITAMIN B COMPLEX
     Route: 065
  11. DESMOPRESSIN [Concomitant]
     Active Substance: DESMOPRESSIN
     Dosage: 3/4 TABLETS
     Route: 065
  12. OXAPROZIN. [Concomitant]
     Active Substance: OXAPROZIN
     Route: 065
  13. AMITRIPTYLINE HCL [Concomitant]
     Active Substance: AMITRIPTYLINE
     Route: 048
  14. BACLOFEN. [Concomitant]
     Active Substance: BACLOFEN
     Route: 065
  15. PROCHLORPERAZINE MALEATE. [Concomitant]
     Active Substance: PROCHLORPERAZINE MALEATE
     Indication: NAUSEA
     Route: 065
  16. VICODIN [Concomitant]
     Active Substance: ACETAMINOPHEN\HYDROCODONE BITARTRATE
     Dosage: AS REQUIRED
     Route: 065
  17. LORAZEPAM. [Concomitant]
     Active Substance: LORAZEPAM
     Route: 065

REACTIONS (23)
  - Blood sodium decreased [Unknown]
  - Sluggishness [Unknown]
  - Palpitations [Unknown]
  - Neuralgia [Unknown]
  - Seizure [Unknown]
  - Fatigue [Unknown]
  - Confusional state [Unknown]
  - Depression [Unknown]
  - Dyspnoea [Unknown]
  - Obesity [Unknown]
  - Alopecia [Unknown]
  - Hot flush [Unknown]
  - Nasopharyngitis [Unknown]
  - Vision blurred [Unknown]
  - Arthralgia [Unknown]
  - Skin striae [Unknown]
  - Constipation [Unknown]
  - Lower respiratory tract infection [Unknown]
  - Swelling [Unknown]
  - Headache [Unknown]
  - Amnesia [Not Recovered/Not Resolved]
  - Slow speech [Unknown]
  - Oedema [Unknown]

NARRATIVE: CASE EVENT DATE: 201212
